APPROVED DRUG PRODUCT: GRANISETRON HYDROCHLORIDE PRESERVATIVE FREE
Active Ingredient: GRANISETRON HYDROCHLORIDE
Strength: EQ 1MG BASE/ML (EQ 1MG BASE/ML)
Dosage Form/Route: INJECTABLE;INJECTION
Application: A077165 | Product #001
Applicant: DR REDDYS LABORATORIES LTD
Approved: Dec 31, 2007 | RLD: No | RS: No | Type: DISCN